FAERS Safety Report 7089212-9 (Version None)
Quarter: 2010Q4

REPORT INFORMATION
  Report Type: 
  Country: None (occurrence: None)
  Receive Date: 20101029
  Receipt Date: 20101020
  Transmission Date: 20110411
  Serious: Yes (Hospitalization)
  Sender: FDA-Public Use
  Company Number: 2007JP003221

PATIENT
  Sex: Female
  Weight: 50 kg

DRUGS (11)
  1. TACROLIMUS [Suspect]
     Indication: LUPUS NEPHRITIS
     Dosage: 3 MG, ORAL
     Route: 048
     Dates: start: 20070519
  2. PREDNISOLONE [Suspect]
     Dosage: 30 MG, QOD, ORAL; 25 MG, QOD, ORAL
     Route: 048
     Dates: end: 20071221
  3. PREDNISOLONE [Suspect]
     Dosage: 30 MG, QOD, ORAL; 25 MG, QOD, ORAL
     Route: 048
     Dates: start: 20071222, end: 20081121
  4. PREDNISOLONE [Suspect]
     Dosage: 30 MG, QOD, ORAL; 25 MG, QOD, ORAL
     Route: 048
     Dates: start: 20081122, end: 20090119
  5. PREDNISOLONE [Suspect]
     Dosage: 30 MG, QOD, ORAL; 25 MG, QOD, ORAL
     Route: 048
     Dates: start: 20090120
  6. WARFARIN SODIUM [Concomitant]
  7. PARIET (RABEPRAZOLE SODIUM) PER ORAL NOS [Concomitant]
  8. MUCOSTA (REBAMIPIDE) PER ORAL NOS [Concomitant]
  9. BONALON (ALENDRONIC ACID) PER ORAL NOS [Concomitant]
  10. BAKTAR (SULFAMETHOXAZOLE, TRIMETHOPRIM) PER ORAL NOS [Concomitant]
  11. LIPITOR [Concomitant]

REACTIONS (5)
  - BIOPSY BONE MARROW ABNORMAL [None]
  - HEADACHE [None]
  - INFLUENZA [None]
  - MENINGITIS [None]
  - PHARYNGITIS [None]
